FAERS Safety Report 25979989 (Version 2)
Quarter: 2025Q4

REPORT INFORMATION
  Report Type: Spontaneous
  Country: CN (occurrence: CN)
  Receive Date: 20251030
  Receipt Date: 20251113
  Transmission Date: 20260118
  Serious: Yes (Hospitalization)
  Sender: ALKEM
  Company Number: None

PATIENT
  Age: 39 Year
  Sex: Female
  Weight: 56 kg

DRUGS (11)
  1. SILDENAFIL [Suspect]
     Active Substance: SILDENAFIL
     Indication: Pulmonary hypertension
     Dosage: 25 MILLIGRAM, TID
     Route: 065
     Dates: start: 202405
  2. SILDENAFIL [Suspect]
     Active Substance: SILDENAFIL
     Indication: Skin ulcer
  3. AMBRISENTAN [Suspect]
     Active Substance: AMBRISENTAN
     Indication: Pulmonary hypertension
     Dosage: UNK
     Route: 065
     Dates: start: 2024
  4. AMBRISENTAN [Suspect]
     Active Substance: AMBRISENTAN
     Indication: Skin ulcer
  5. CYCLOSPORINE [Concomitant]
     Active Substance: CYCLOSPORINE
     Indication: Pulmonary hypertension
     Dosage: 150 MILLIGRAM, QD (IN THE MORNING AND EVENING)
     Route: 065
     Dates: start: 202405
  6. METHYLPREDNISOLONE [Concomitant]
     Active Substance: METHYLPREDNISOLONE
     Indication: Necrosis ischaemic
     Dosage: 40 MILLIGRAM, QD
     Route: 042
     Dates: start: 2024
  7. METHYLPREDNISOLONE [Concomitant]
     Active Substance: METHYLPREDNISOLONE
     Dosage: 80 MILLIGRAM, QD
     Route: 042
  8. MYCOPHENOLATE MOFETIL [Concomitant]
     Active Substance: MYCOPHENOLATE MOFETIL
     Indication: Necrosis ischaemic
     Dosage: 0.5 GRAM, BID
     Route: 065
     Dates: start: 2024
  9. PREDNISONE [Concomitant]
     Active Substance: PREDNISONE
     Indication: Pulmonary hypertension
     Dosage: 10 MILLIGRAM, QD
     Route: 065
     Dates: start: 202405
  10. PREDNISONE [Concomitant]
     Active Substance: PREDNISONE
     Dosage: 30 MILLIGRAM, QD (TAPERED DOSE)
     Route: 065
     Dates: start: 202405
  11. PREDNISONE [Concomitant]
     Active Substance: PREDNISONE
     Dosage: 40 MILLIGRAM, QD
     Route: 065

REACTIONS (1)
  - Meigs^ syndrome [Recovering/Resolving]

NARRATIVE: CASE EVENT DATE: 20250101
